FAERS Safety Report 17941805 (Version 1)
Quarter: 2020Q2

REPORT INFORMATION
  Report Type: Spontaneous
  Country: RO (occurrence: RO)
  Receive Date: 20200624
  Receipt Date: 20200624
  Transmission Date: 20200714
  Serious: Yes (Other)
  Sender: FDA-Public Use
  Company Number: RO-AMGEN-ROUSP2020097686

PATIENT
  Age: 19 Year
  Sex: Male

DRUGS (3)
  1. DEXAMETHASONE. [Concomitant]
     Active Substance: DEXAMETHASONE
     Indication: PROPHYLAXIS
     Dosage: 20 MILLIGRAM, QD, DAY 1 AND WITH DOSE ESCALATION
     Dates: start: 201902
  2. BLINCYTO [Suspect]
     Active Substance: BLINATUMOMAB
     Dosage: 28 MICROGRAM, QD
     Route: 042
     Dates: end: 2019
  3. BLINCYTO [Suspect]
     Active Substance: BLINATUMOMAB
     Indication: ACUTE LYMPHOCYTIC LEUKAEMIA
     Dosage: 9 MICROGRAM, QD
     Route: 042
     Dates: start: 201902

REACTIONS (5)
  - Respiratory failure [Unknown]
  - Systemic inflammatory response syndrome [Unknown]
  - Therapy non-responder [Unknown]
  - Disseminated intravascular coagulation [Unknown]
  - Pancytopenia [Unknown]

NARRATIVE: CASE EVENT DATE: 2019
